FAERS Safety Report 18560086 (Version 3)
Quarter: 2022Q3

REPORT INFORMATION
  Report Type: Spontaneous
  Country: US (occurrence: US)
  Receive Date: 20201130
  Receipt Date: 20220909
  Transmission Date: 20221027
  Serious: Yes (Other)
  Sender: FDA-Public Use
  Company Number: US-CATALYST PHARMACEUTICALS, INC-2020CAT00485

PATIENT
  Sex: Female
  Weight: 75.737 kg

DRUGS (11)
  1. FIRDAPSE [Suspect]
     Active Substance: AMIFAMPRIDINE PHOSPHATE
     Indication: Myasthenic syndrome
     Dosage: UNK
     Dates: start: 20200519, end: 2020
  2. FIRDAPSE [Suspect]
     Active Substance: AMIFAMPRIDINE PHOSPHATE
     Dosage: 20 MG, 4X/DAY
     Route: 048
     Dates: start: 20200619, end: 2020
  3. FIRDAPSE [Suspect]
     Active Substance: AMIFAMPRIDINE PHOSPHATE
     Dosage: 20 MG, 4X/DAY
     Route: 048
     Dates: start: 2020
  4. FIRDAPSE [Suspect]
     Active Substance: AMIFAMPRIDINE PHOSPHATE
     Dosage: TWO TABLETS (20 MG), 4X/DAY
     Route: 048
  5. FIRDAPSE [Suspect]
     Active Substance: AMIFAMPRIDINE PHOSPHATE
     Dosage: TWO TABLETS (20 MG), 4X/DAY
     Route: 048
     Dates: end: 202208
  6. UNSPECIFIED INGREDIENT [Suspect]
     Active Substance: UNSPECIFIED INGREDIENT
  7. LORAZEPAM [Concomitant]
     Active Substance: LORAZEPAM
     Dosage: 1 MG, AS NEEDED
  8. VALSARTAN [Concomitant]
     Active Substance: VALSARTAN
     Dosage: 160 MG, 1X/DAY
  9. PROPRANOLOL [Concomitant]
     Active Substance: PROPRANOLOL HYDROCHLORIDE
     Dosage: 10 MG, 2X/DAY
  10. PROGESTERONE [Concomitant]
     Active Substance: PROGESTERONE
     Dosage: 100 MG, 1X/DAY AT NIGHT
  11. TESTOSTERONE [Concomitant]
     Active Substance: TESTOSTERONE
     Dosage: 25 MG, AS NEEDED

REACTIONS (10)
  - Small cell lung cancer [Unknown]
  - Lymphadenopathy [Not Recovered/Not Resolved]
  - Contusion [Unknown]
  - Weight increased [Not Recovered/Not Resolved]
  - Swelling face [Not Recovered/Not Resolved]
  - Swelling [Not Recovered/Not Resolved]
  - Abdominal distension [Not Recovered/Not Resolved]
  - Vomiting [Not Recovered/Not Resolved]
  - Paraesthesia [Not Recovered/Not Resolved]
  - Paraesthesia oral [Not Recovered/Not Resolved]

NARRATIVE: CASE EVENT DATE: 20200101
